FAERS Safety Report 7301475-0 (Version None)
Quarter: 2011Q1

REPORT INFORMATION
  Report Type: 
  Country: None (occurrence: None)
  Receive Date: 20110218
  Receipt Date: 20110208
  Transmission Date: 20110831
  Serious: Yes (Hospitalization)
  Sender: FDA-Public Use
  Company Number: TW-ABBOTT-11P-153-0703569-00

PATIENT
  Age: 46 Year
  Sex: Male

DRUGS (3)
  1. FLUPENTIXOL [Suspect]
     Indication: SCHIZOPHRENIA
     Dosage: EVERY OTHER WEEK
     Route: 030
  2. VALPROATE SODIUM [Suspect]
     Indication: SCHIZOPHRENIA
     Dosage: 500 MG DAILY
     Route: 048
  3. SULPIRIDE [Suspect]
     Indication: SCHIZOPHRENIA
     Route: 065

REACTIONS (5)
  - COUGH [None]
  - PARKINSONISM [None]
  - DYSPHAGIA [None]
  - ASPHYXIA [None]
  - DYSKINESIA [None]
